FAERS Safety Report 9525222 (Version 2)
Quarter: 2013Q3

REPORT INFORMATION
  Report Type: Spontaneous
  Country: ZA (occurrence: ZA)
  Receive Date: 20130916
  Receipt Date: 20130924
  Transmission Date: 20140515
  Serious: Yes (Hospitalization)
  Sender: FDA-Public Use
  Company Number: ZA-NOVOPROD-387250

PATIENT
  Age: 67 Year
  Sex: Female
  Weight: 105 kg

DRUGS (8)
  1. VICTOZA [Suspect]
     Indication: TYPE 2 DIABETES MELLITUS
     Dosage: 1.2 MG
     Route: 065
  2. GLUCOPHAGE [Concomitant]
     Indication: DIABETES MELLITUS
     Dosage: UNK
     Route: 048
  3. PHARMAPRESS                        /00574902/ [Concomitant]
     Indication: HYPERTENSION
     Dosage: 20 MG, SINGLE
  4. DIAGLUCIDE [Concomitant]
     Indication: DIABETES MELLITUS
     Dosage: 30 MG, SINGLE
     Route: 048
  5. DISPRIN [Concomitant]
     Dosage: UNK
     Route: 048
  6. PURICOS [Concomitant]
     Indication: HYPERURICAEMIA
     Dosage: 300 MG, SINGLE
  7. LENOXIN [Concomitant]
     Indication: CARDIAC FAILURE
     Dosage: 0.12 MG, SINGLE
     Route: 048
  8. VASOMIL [Concomitant]
     Dosage: 80 MG, BID
     Route: 048

REACTIONS (3)
  - Palpitations [Recovered/Resolved]
  - Chest pain [Recovered/Resolved]
  - Dyspnoea [Recovered/Resolved]
